FAERS Safety Report 18323001 (Version 3)
Quarter: 2020Q4

REPORT INFORMATION
  Report Type: Report from Study
  Country: CA (occurrence: CA)
  Receive Date: 20200929
  Receipt Date: 20201130
  Transmission Date: 20210113
  Serious: Yes (Hospitalization)
  Sender: FDA-Public Use
  Company Number: CA-GLAXOSMITHKLINE-CA2020AMR192415

PATIENT
  Sex: Male

DRUGS (1)
  1. MEPOLIZUMAB [Suspect]
     Active Substance: MEPOLIZUMAB
     Indication: ASTHMA
     Dosage: 100 MG, Z, MONTHLY
     Route: 042
     Dates: start: 20200312

REACTIONS (5)
  - Muscular weakness [Not Recovered/Not Resolved]
  - Hypotonia [Unknown]
  - Dizziness [Unknown]
  - Computerised tomogram head abnormal [Unknown]
  - Vertigo [Unknown]
